FAERS Safety Report 9982590 (Version 1)
Quarter: 2014Q1

REPORT INFORMATION
  Report Type: Report from Study
  Country: US (occurrence: US)
  Receive Date: 20140307
  Receipt Date: 20140307
  Transmission Date: 20141002
  Serious: No
  Sender: FDA-Public Use
  Company Number: US-ABBVIE-13P-163-1175793-00

PATIENT
  Age: 60 Year
  Sex: Female
  Weight: 81.72 kg

DRUGS (6)
  1. HUMIRA [Suspect]
     Indication: RHEUMATOID ARTHRITIS
     Dates: start: 2012, end: 201307
  2. HUMIRA [Suspect]
     Dates: start: 201307, end: 201312
  3. ATENOLOL [Concomitant]
     Indication: HYPERTENSION
  4. HYDROCODONE [Concomitant]
     Indication: ARTHRALGIA
  5. HYDROCODONE [Concomitant]
     Indication: SYSTEMIC LUPUS ERYTHEMATOSUS
  6. XANAX [Concomitant]
     Indication: ANXIETY

REACTIONS (4)
  - Red blood cell sedimentation rate increased [Recovering/Resolving]
  - Discomfort [Not Recovered/Not Resolved]
  - Herpes zoster [Not Recovered/Not Resolved]
  - Rash [Not Recovered/Not Resolved]
